FAERS Safety Report 6533029-8 (Version None)
Quarter: 2010Q1

REPORT INFORMATION
  Report Type: 
  Country: None (occurrence: None)
  Receive Date: 20100111
  Receipt Date: 20100107
  Transmission Date: 20100710
  Serious: Yes (Other)
  Sender: FDA-Public Use
  Company Number: CH-BRISTOL-MYERS SQUIBB COMPANY-14914782

PATIENT
  Age: 48 Year
  Sex: Male

DRUGS (4)
  1. ATAZANAVIR [Suspect]
  2. EFAVIRENZ [Suspect]
  3. RALTEGRAVIR [Suspect]
  4. SAQUINAVIR [Suspect]

REACTIONS (2)
  - HAEMATURIA [None]
  - NEPHROLITHIASIS [None]
